FAERS Safety Report 9008619 (Version 1)
Quarter: 2013Q1

REPORT INFORMATION
  Report Type: Spontaneous
  Country: US (occurrence: US)
  Receive Date: 20130111
  Receipt Date: 20130111
  Transmission Date: 20140127
  Serious: No
  Sender: FDA-Public Use
  Company Number: US-MYLANLABS-2012S1021533

PATIENT
  Age: 52 Year
  Sex: Female
  Weight: 56.7 kg

DRUGS (2)
  1. BONIVA [Suspect]
     Indication: OSTEOPENIA
     Route: 048
     Dates: end: 201205
  2. IBANDRONATE SODIUM TABLETS [Suspect]
     Indication: OSTEOPENIA
     Route: 048
     Dates: start: 201205

REACTIONS (1)
  - Oesophagitis [Not Recovered/Not Resolved]
